FAERS Safety Report 6576491-7 (Version None)
Quarter: 2010Q1

REPORT INFORMATION
  Report Type: 
  Country: None (occurrence: None)
  Receive Date: 20100210
  Receipt Date: 20100202
  Transmission Date: 20100710
  Serious: Yes (Other)
  Sender: FDA-Public Use
  Company Number: GR-PFIZER INC-2010013412

PATIENT
  Sex: Female

DRUGS (1)
  1. AROMASIN [Suspect]
     Dosage: UNK
     Route: 048
     Dates: start: 20091201, end: 20100101

REACTIONS (4)
  - ASTHENIA [None]
  - FACE OEDEMA [None]
  - FATIGUE [None]
  - OEDEMA PERIPHERAL [None]
